FAERS Safety Report 4443290-1 (Version None)
Quarter: 2004Q3

REPORT INFORMATION
  Report Type: 
  Country: None (occurrence: None)
  Receive Date: 20040907
  Receipt Date: 20040907
  Transmission Date: 20050211
  Serious: Yes (Other)
  Sender: FDA-Public Use
  Company Number: None

PATIENT
  Age: 83 Month
  Sex: Male
  Weight: 21.3191 kg

DRUGS (1)
  1. STRATTERA [Suspect]
     Indication: ATTENTION DEFICIT/HYPERACTIVITY DISORDER
     Dosage: 18MG
     Route: 048
     Dates: start: 20040902, end: 20040902

REACTIONS (3)
  - ABDOMINAL PAIN [None]
  - CONDITION AGGRAVATED [None]
  - VOMITING [None]
